FAERS Safety Report 19270353 (Version 3)
Quarter: 2021Q3

REPORT INFORMATION
  Report Type: Spontaneous
  Country: US (occurrence: US)
  Receive Date: 20210518
  Receipt Date: 20210819
  Transmission Date: 20211014
  Serious: Yes (Hospitalization, Other)
  Sender: FDA-Public Use
  Company Number: US-PFIZER INC-2021522905

PATIENT
  Age: 64 Year
  Sex: Female

DRUGS (2)
  1. XELJANZ XR [Suspect]
     Active Substance: TOFACITINIB CITRATE
     Indication: RHEUMATOID ARTHRITIS
     Dosage: 11 MG, 1X/DAY
     Route: 048
     Dates: start: 2020
  2. ETODOLAC. [Concomitant]
     Active Substance: ETODOLAC
     Dosage: UNK
     Dates: end: 2021

REACTIONS (8)
  - Back pain [Unknown]
  - Arthralgia [Unknown]
  - Nephrolithiasis [Unknown]
  - Malaise [Unknown]
  - Drug ineffective [Unknown]
  - Oral pain [Unknown]
  - Sensitivity to weather change [Unknown]
  - Eyelid infection [Unknown]

NARRATIVE: CASE EVENT DATE: 202011
